FAERS Safety Report 10738857 (Version 1)
Quarter: 2015Q1

REPORT INFORMATION
  Report Type: Spontaneous
  Country: US (occurrence: US)
  Receive Date: 20150126
  Receipt Date: 20150126
  Transmission Date: 20150721
  Serious: No
  Sender: FDA-Public Use
  Company Number: US-DYAX CORP.-2014DX000319

PATIENT
  Age: 62 Year
  Sex: Female
  Weight: 90.8 kg

DRUGS (5)
  1. FIRAZYR [Concomitant]
     Active Substance: ICATIBANT ACETATE
     Indication: HEREDITARY ANGIOEDEMA
     Route: 065
  2. DANAZOL. [Concomitant]
     Active Substance: DANAZOL
     Indication: HEREDITARY ANGIOEDEMA
     Route: 065
  3. KALBITOR [Suspect]
     Active Substance: ECALLANTIDE
     Route: 058
  4. MYASTHENIA GRAVIS MEDICATION [Concomitant]
     Indication: MYASTHENIA GRAVIS
     Route: 065
  5. KALBITOR [Suspect]
     Active Substance: ECALLANTIDE
     Indication: HEREDITARY ANGIOEDEMA
     Route: 058
     Dates: start: 201411, end: 201411

REACTIONS (3)
  - Therapeutic response decreased [Unknown]
  - Off label use [Unknown]
  - Myasthenia gravis [Not Recovered/Not Resolved]

NARRATIVE: CASE EVENT DATE: 201411
